FAERS Safety Report 4345971-7 (Version None)
Quarter: 2004Q2

REPORT INFORMATION
  Report Type: 
  Country: None (occurrence: None)
  Receive Date: 20040423
  Receipt Date: 20040407
  Transmission Date: 20050107
  Serious: Yes (Other)
  Sender: FDA-Public Use
  Company Number: 2004S1000841

PATIENT
  Age: 54 Year
  Sex: Male
  Weight: 90.7194 kg

DRUGS (4)
  1. EXTENDED PHENYTOIN SODIUM [Suspect]
     Indication: INNER EAR DISORDER
     Dosage: 100MG, QD, ORAL
     Route: 048
     Dates: start: 19980101, end: 20040101
  2. EXTENDED PHENYTOIN SODIUM [Suspect]
     Indication: LABYRINTHITIS
     Dosage: 100MG, QD, ORAL
     Route: 048
     Dates: start: 19980101, end: 20040101
  3. DIAZEPAM [Concomitant]
  4. ACETAZOLAMIDE [Concomitant]

REACTIONS (1)
  - GYNAECOMASTIA [None]
